FAERS Safety Report 7040365-8 (Version None)
Quarter: 2010Q4

REPORT INFORMATION
  Report Type: 
  Country: None (occurrence: None)
  Receive Date: 20101008
  Receipt Date: 20101008
  Transmission Date: 20110411
  Serious: Yes (Death, Hospitalization)
  Sender: FDA-Public Use
  Company Number: None

PATIENT
  Sex: Female
  Weight: 14.8 kg

DRUGS (5)
  1. CYCLOPHOSPHAMIDE [Suspect]
     Dosage: 2885 MG
  2. DOXORUBICIN HYDROCHLORIDE [Suspect]
     Dosage: 28 MG
  3. ETOPOSIDE [Suspect]
     Dosage: 480 MG
  4. VINCRISTINE SULFATE [Suspect]
     Dosage: 2.7 MG
  5. CARBOPLATIN [Suspect]
     Dosage: 610 MG

REACTIONS (4)
  - CARDIAC DISORDER [None]
  - CARDIAC FAILURE CONGESTIVE [None]
  - CARDIO-RESPIRATORY ARREST [None]
  - HYPOXIC-ISCHAEMIC ENCEPHALOPATHY [None]
